FAERS Safety Report 5144803-7 (Version None)
Quarter: 2006Q4

REPORT INFORMATION
  Report Type: 
  Country: None (occurrence: None)
  Receive Date: 20061107
  Receipt Date: 20060823
  Transmission Date: 20070319
  Serious: Yes (Hospitalization)
  Sender: FDA-Public Use
  Company Number: PHBS2006JP12915

PATIENT
  Age: 4 Month
  Sex: Male
  Weight: 5 kg

DRUGS (5)
  1. AREDIA [Suspect]
     Indication: OSTEOGENESIS IMPERFECTA
     Dosage: 2.5 MG, QD
     Route: 042
     Dates: start: 20060131, end: 20060131
  2. AREDIA [Suspect]
     Dosage: 2.5 MG, QD
     Route: 042
     Dates: start: 20060207, end: 20060207
  3. AREDIA [Suspect]
     Dosage: 2.5 MG, QD
     Route: 042
     Dates: start: 20060308, end: 20060308
  4. AREDIA [Suspect]
     Dosage: 2.5 MG, QD
     Route: 042
     Dates: start: 20060511, end: 20060511
  5. AREDIA [Suspect]
     Dosage: 2.5 MG, QD
     Route: 042
     Dates: start: 20060704, end: 20060704

REACTIONS (4)
  - C-REACTIVE PROTEIN INCREASED [None]
  - PYREXIA [None]
  - RESPIRATORY DISORDER [None]
  - TACHYPNOEA [None]
